FAERS Safety Report 14885654 (Version 5)
Quarter: 2019Q3

REPORT INFORMATION
  Report Type: Spontaneous
  Country: US (occurrence: US)
  Receive Date: 20180511
  Receipt Date: 20190906
  Transmission Date: 20191004
  Serious: Yes (Other)
  Sender: FDA-Public Use
  Company Number: US-BIOMARINAP-US-2018-118084

PATIENT
  Age: 12 Week
  Sex: Male

DRUGS (2)
  1. ALDURAZYME [Suspect]
     Active Substance: LARONIDASE
     Dosage: UNK
     Route: 041
  2. ALDURAZYME [Suspect]
     Active Substance: LARONIDASE
     Indication: MUCOPOLYSACCHARIDOSIS I
     Dosage: UNK
     Route: 041
     Dates: start: 20180329

REACTIONS (5)
  - Bone marrow transplant rejection [Unknown]
  - Incisional drainage [Unknown]
  - Pneumonia [Recovered/Resolved]
  - Pyrexia [Recovering/Resolving]
  - Incision site rash [Unknown]

NARRATIVE: CASE EVENT DATE: 20180420
